FAERS Safety Report 6039076-7 (Version None)
Quarter: 2009Q1

REPORT INFORMATION
  Report Type: 
  Country: None (occurrence: None)
  Receive Date: 20090115
  Receipt Date: 20090108
  Transmission Date: 20090719
  Serious: Yes (Other)
  Sender: FDA-Public Use
  Company Number: DE-PFIZER INC-2009152638

PATIENT

DRUGS (2)
  1. GABAPENTIN [Suspect]
     Indication: DIABETIC NEUROPATHY
     Dosage: 800 MG, UNK
     Route: 048
     Dates: start: 20070101
  2. MORPHINE HCL ELIXIR [Interacting]

REACTIONS (5)
  - AGGRESSION [None]
  - DRUG INTERACTION [None]
  - INAPPROPRIATE SCHEDULE OF DRUG ADMINISTRATION [None]
  - MULTIPLE DRUG OVERDOSE [None]
  - OVERDOSE [None]
